FAERS Safety Report 17096894 (Version 1)
Quarter: 2019Q4

REPORT INFORMATION
  Report Type: Spontaneous
  Country: US (occurrence: US)
  Receive Date: 20191202
  Receipt Date: 20191202
  Transmission Date: 20200122
  Serious: No
  Sender: FDA-Public Use
  Company Number: US-ALLERGAN-1940836US

PATIENT

DRUGS (2)
  1. DAPTOMYCIN. [Suspect]
     Active Substance: DAPTOMYCIN
     Indication: ENDOCARDITIS
  2. TEFLARO [Suspect]
     Active Substance: CEFTAROLINE FOSAMIL
     Indication: ENDOCARDITIS
     Dosage: UNK, Q12H

REACTIONS (2)
  - Drug ineffective [Unknown]
  - Off label use [Unknown]
